FAERS Safety Report 8522695 (Version 4)
Quarter: 2013Q1

REPORT INFORMATION
  Report Type: Spontaneous
  Country: US (occurrence: US)
  Receive Date: 20120419
  Receipt Date: 20130225
  Transmission Date: 20140127
  Serious: Yes (Hospitalization, Other)
  Sender: FDA-Public Use
  Company Number: US-ELI_LILLY_AND_COMPANY-US201204005124

PATIENT
  Age: 75 Year
  Sex: Female

DRUGS (5)
  1. FORTEO [Suspect]
     Indication: OSTEOPOROSIS
     Dosage: 20 UG, QD
     Route: 065
     Dates: start: 20111130
  2. FORTEO [Suspect]
     Dosage: 20 UG, QD
     Route: 065
     Dates: end: 20120412
  3. FORTEO [Suspect]
     Dosage: 20 UG, QD
     Route: 065
  4. SYNTHROID [Concomitant]
  5. ZETIA [Concomitant]

REACTIONS (8)
  - Vessel perforation [Unknown]
  - Arthralgia [Not Recovered/Not Resolved]
  - Insomnia [Unknown]
  - Oropharyngeal pain [Unknown]
  - Breast calcifications [Unknown]
  - Local swelling [Not Recovered/Not Resolved]
  - Fall [Unknown]
  - Gait disturbance [Unknown]
